FAERS Safety Report 7768173-0 (Version None)
Quarter: 2011Q3

REPORT INFORMATION
  Report Type: 
  Country: None (occurrence: None)
  Receive Date: 20110922
  Receipt Date: 20110922
  Transmission Date: 20111222
  Serious: No
  Sender: FDA-Public Use
  Company Number: None

PATIENT
  Age: 21 Year
  Sex: Female
  Weight: 68.038 kg

DRUGS (1)
  1. OLANZAPINE [Suspect]
     Dosage: 20MG
     Route: 048

REACTIONS (1)
  - WEIGHT INCREASED [None]
